FAERS Safety Report 5013661-3 (Version None)
Quarter: 2006Q2

REPORT INFORMATION
  Report Type: 
  Country: None (occurrence: None)
  Receive Date: 20060530
  Receipt Date: 20060524
  Transmission Date: 20061013
  Serious: Yes (Hospitalization)
  Sender: FDA-Public Use
  Company Number: FR-GLAXOSMITHKLINE-B0425430A

PATIENT
  Age: 77 Year
  Sex: Female

DRUGS (13)
  1. AUGMENTIN '125' [Suspect]
     Dosage: 1G THREE TIMES PER DAY
     Route: 048
     Dates: end: 20040503
  2. PYOSTACINE [Concomitant]
     Route: 048
  3. CIFLOX [Concomitant]
     Route: 048
  4. LOVENOX [Concomitant]
     Route: 048
  5. LASILIX [Concomitant]
     Route: 048
  6. MIXTARD HUMAN 70/30 [Concomitant]
     Route: 042
  7. DIFFU-K [Concomitant]
     Route: 065
  8. GLUCOR [Concomitant]
     Route: 065
  9. CORVASAL [Concomitant]
     Route: 065
  10. LEVOTHYROX [Concomitant]
     Route: 065
  11. MOPRAL [Concomitant]
     Route: 065
  12. ASPIRIN [Concomitant]
     Route: 065
  13. VASTEN [Concomitant]
     Route: 065

REACTIONS (5)
  - ACUTE GENERALISED EXANTHEMATOUS PUSTULOSIS [None]
  - BLOOD CREATININE INCREASED [None]
  - LEUKOCYTOSIS [None]
  - RASH [None]
  - RASH PUSTULAR [None]
